FAERS Safety Report 8726299 (Version 3)
Quarter: 2012Q4

REPORT INFORMATION
  Report Type: 
  Country: GB (occurrence: GB)
  Receive Date: 20120816
  Receipt Date: 20121008
  Transmission Date: 20130627
  Serious: Yes (Other)
  Sender: FDA-Public Use
  Company Number: PHFR2012GB004473

PATIENT
  Age: 76 Year
  Sex: Male
  Weight: 82 kg

DRUGS (5)
  1. EXELON PATCH [Suspect]
     Indication: DEMENTIA
     Dosage: 9.5 mg, Daily
     Route: 062
     Dates: start: 20120523
  2. QUETIAPINE [Concomitant]
     Indication: DEMENTIA
     Dosage: 25 mg, UNK
     Route: 048
     Dates: start: 20110314
  3. ASCORBIC ACID (VIT C) [Concomitant]
     Dosage: 1000 mg, Daily
  4. COD-LIVER OIL [Concomitant]
  5. VITA-E [Concomitant]

REACTIONS (10)
  - Penile infection [Recovered/Resolved]
  - Musculoskeletal stiffness [Recovered/Resolved]
  - Memory impairment [Not Recovered/Not Resolved]
  - Abdominal discomfort [Recovered/Resolved]
  - Inappropriate schedule of drug administration [Recovered/Resolved]
  - Drug administration error [Unknown]
  - Fall [Recovered/Resolved]
  - Hallucination [Recovered/Resolved]
  - Dermatitis allergic [Recovered/Resolved]
  - Application site pruritus [Recovered/Resolved]
